FAERS Safety Report 6660140-3 (Version None)
Quarter: 2010Q1

REPORT INFORMATION
  Report Type: 
  Country: None (occurrence: None)
  Receive Date: 20100331
  Receipt Date: 20100305
  Transmission Date: 20100710
  Serious: No
  Sender: FDA-Public Use
  Company Number: 2009BI013817

PATIENT
  Age: 45 Year
  Sex: Male

DRUGS (2)
  1. TYSABRI [Suspect]
     Indication: MULTIPLE SCLEROSIS
     Route: 042
     Dates: start: 20080404
  2. BENADRYL [Concomitant]
     Indication: PROPHYLAXIS
     Dates: start: 20080501

REACTIONS (7)
  - BURNING SENSATION [None]
  - CHILLS [None]
  - FATIGUE [None]
  - FOOT FRACTURE [None]
  - HYPERSENSITIVITY [None]
  - OEDEMA PERIPHERAL [None]
  - PAIN IN EXTREMITY [None]
